FAERS Safety Report 9971087 (Version 1)
Quarter: 2014Q1

REPORT INFORMATION
  Report Type: Report from Study
  Country: US (occurrence: US)
  Receive Date: 20140306
  Receipt Date: 20140306
  Transmission Date: 20141002
  Serious: No
  Sender: FDA-Public Use
  Company Number: US-ABBVIE-13P-163-1149324-00

PATIENT
  Age: 63 Year
  Sex: Female

DRUGS (15)
  1. HUMIRA [Suspect]
     Indication: PSORIATIC ARTHROPATHY
     Dates: start: 20130608
  2. ATENOLOL [Concomitant]
     Indication: HEART RATE INCREASED
     Dosage: 25MG DAILY
  3. METFORMIN [Concomitant]
     Indication: DIABETES MELLITUS
  4. DILTIAZEM [Concomitant]
     Indication: ATRIAL FIBRILLATION
     Dosage: 300MG DAILY
  5. PRADAXA [Concomitant]
     Indication: ATRIAL FIBRILLATION
     Dosage: 150MG DAILY
  6. RENEXA [Concomitant]
     Indication: ATRIAL FIBRILLATION
  7. NEXIUM [Concomitant]
     Indication: GASTROOESOPHAGEAL REFLUX DISEASE
     Dosage: 40MG DAILY
  8. SYNTHROID [Concomitant]
     Indication: THYROID DISORDER
     Dosage: 150MCG DAILY
  9. TRIAMTERENE [Concomitant]
     Indication: HYPERTENSION
     Dosage: 35.3/25MG
  10. CYCLOBENZAPRINE [Concomitant]
     Indication: INSOMNIA
     Dosage: 10MG DAILY
  11. CRESTOR [Concomitant]
     Indication: BLOOD CHOLESTEROL
     Dosage: 20MG DAILY
  12. TRAMADOL HYDROCHLORIDE [Concomitant]
     Indication: RESTLESS LEGS SYNDROME
  13. FLUOXETINE HYDROCHLORIDE [Concomitant]
     Indication: BIPOLAR DISORDER
  14. METHOTREXATE [Concomitant]
     Indication: PSORIATIC ARTHROPATHY
     Dosage: 3 TABS
     Dates: start: 201308
  15. FOLIC ACID [Concomitant]
     Indication: PSORIATIC ARTHROPATHY
     Dates: start: 201308

REACTIONS (1)
  - Bronchitis [Recovering/Resolving]
